FAERS Safety Report 10377631 (Version 1)
Quarter: 2014Q1

REPORT INFORMATION
  Report Type: Spontaneous
  Country: US (occurrence: None)
  Receive Date: 20140306
  Receipt Date: 20140306
  Transmission Date: 20141002
  Serious: Yes (Other)
  Sender: FDA-Public Use
  Company Number: 163-21880-13033846

PATIENT
  Age: 68 Year
  Sex: Male

DRUGS (9)
  1. REVLIMID (LENALIDOMIDE) (CAPSULES) [Suspect]
     Indication: PLASMA CELL MYELOMA
     Dosage: 04-FEB-2013 - TEMPORARILY INTERRUPTED?25 MG, 21 IN 21 D, PO
     Route: 048
     Dates: start: 20130204
  2. ALLOPURINOL (ALLOPURINOL) (UNKNOWN) [Concomitant]
  3. ASA (ACETYLSALICYLIC ACID) (UNKNOWN) [Concomitant]
  4. CARVEDILOL (CARVEDILOL) (UNKNOWN) [Concomitant]
  5. CENTRUM CARDIO (CENTRUM) (UNKNOWN) [Concomitant]
  6. CRESTOR (ROSUVASTATIN) (UNKNOWN) [Concomitant]
  7. DEXAMETHASONE (DEXAMETHASONE) (UNKNOWN) [Concomitant]
  8. PREVACID (LANSOPRAZOLE) (UNKNOWN) [Concomitant]
  9. ZETIA (EZETIMIBE) (UNKNOWN) [Concomitant]

REACTIONS (1)
  - Thrombosis [None]
